FAERS Safety Report 6520558-6 (Version None)
Quarter: 2009Q4

REPORT INFORMATION
  Report Type: 
  Country: None (occurrence: None)
  Receive Date: 20091229
  Receipt Date: 20091217
  Transmission Date: 20100525
  Serious: Yes (Hospitalization, Other)
  Sender: FDA-Public Use
  Company Number: JP-PFIZER INC-2009305458

PATIENT
  Age: 18 Year
  Sex: Male
  Weight: 77 kg

DRUGS (3)
  1. CORTRIL [Suspect]
     Indication: HYPOPITUITARISM
     Dosage: 10 MG, 1X/DAY
     Dates: start: 20080617, end: 20080704
  2. ETOPOSIDE [Concomitant]
     Dates: start: 20080620, end: 20080625
  3. CARBOPLATIN [Concomitant]
     Dates: start: 20080620, end: 20080625

REACTIONS (1)
  - POLYURIA [None]
